FAERS Safety Report 5268316-7 (Version None)
Quarter: 2007Q1

REPORT INFORMATION
  Report Type: 
  Country: None (occurrence: None)
  Receive Date: 20070313
  Receipt Date: 20070302
  Transmission Date: 20070707
  Serious: Yes (Hospitalization)
  Sender: FDA-Public Use
  Company Number: 2007-00560

PATIENT
  Age: 63 Year
  Sex: Female

DRUGS (5)
  1. VELCADE [Suspect]
     Indication: MULTIPLE MYELOMA
     Dosage: 1.30 MG/M2, INTRAVENOUS
     Route: 042
     Dates: start: 20070220
  2. THALIDOMIDE [Suspect]
     Indication: MULTIPLE MYELOMA
     Dosage: 100.00 MG
     Dates: start: 20070220
  3. DEXAMETHASONE [Suspect]
     Indication: MULTIPLE MYELOMA
     Dosage: 40.00 MG
     Dates: start: 20070220
  4. PREVISCAN (FLUINDIONE) [Concomitant]
  5. FRAXODI (NADROPARIN  CALCIUM) [Concomitant]

REACTIONS (3)
  - ATRIAL FIBRILLATION [None]
  - NASOPHARYNGITIS [None]
  - PHLEBITIS [None]
